FAERS Safety Report 18770970 (Version 1)
Quarter: 2021Q1

REPORT INFORMATION
  Report Type: Spontaneous
  Country: US (occurrence: US)
  Receive Date: 20210122
  Receipt Date: 20210122
  Transmission Date: 20210419
  Serious: No
  Sender: FDA-Public Use
  Company Number: US-SA-2021SA016650

PATIENT
  Sex: Female

DRUGS (4)
  1. CARBAMAZEPINE. [Concomitant]
     Active Substance: CARBAMAZEPINE
  2. MULTAQ [Suspect]
     Active Substance: DRONEDARONE
     Indication: ATRIAL FIBRILLATION
     Dosage: 400 BID
     Route: 048
  3. BRIVARACETAM [Concomitant]
     Active Substance: BRIVARACETAM
  4. LACOSAMIDE. [Concomitant]
     Active Substance: LACOSAMIDE

REACTIONS (2)
  - Nervous system disorder [Unknown]
  - Dysarthria [Unknown]
